FAERS Safety Report 24609498 (Version 1)
Quarter: 2024Q4

REPORT INFORMATION
  Report Type: Spontaneous
  Country: US (occurrence: US)
  Receive Date: 20241112
  Receipt Date: 20241112
  Transmission Date: 20250115
  Serious: Yes (Other)
  Sender: NOVARTIS
  Company Number: US-002147023-NVSC2024US215994

PATIENT

DRUGS (1)
  1. KYMRIAH [Suspect]
     Active Substance: TISAGENLECLEUCEL
     Indication: Acute lymphocytic leukaemia
     Dosage: UNK, ONCE/SINGLE (1.9E6 CAR T CELLS/KG)
     Route: 042
     Dates: start: 20241007, end: 20241007

REACTIONS (2)
  - B-lymphocyte abnormalities [Unknown]
  - Minimal residual disease [Unknown]
